FAERS Safety Report 25686097 (Version 1)
Quarter: 2025Q3

REPORT INFORMATION
  Report Type: Spontaneous
  Country: TR (occurrence: TR)
  Receive Date: 20250815
  Receipt Date: 20250815
  Transmission Date: 20251020
  Serious: Yes (Other)
  Sender: AMGEN
  Company Number: TR-AMGEN-TURSP2025156557

PATIENT

DRUGS (1)
  1. ADALIMUMAB [Suspect]
     Active Substance: ADALIMUMAB
     Indication: Behcet^s syndrome
     Route: 065

REACTIONS (8)
  - Autoimmune demyelinating disease [Unknown]
  - Tuberculosis [Unknown]
  - Behcet^s syndrome [Unknown]
  - Drug effective for unapproved indication [Unknown]
  - Infection [Unknown]
  - Injection site reaction [Unknown]
  - Hypersensitivity [Unknown]
  - Off label use [Unknown]
